FAERS Safety Report 5074916-X (Version None)
Quarter: 2006Q3

REPORT INFORMATION
  Report Type: 
  Country: None (occurrence: None)
  Receive Date: 20060809
  Receipt Date: 20060731
  Transmission Date: 20061208
  Serious: Yes (Hospitalization)
  Sender: FDA-Public Use
  Company Number: PHBS2006FI11658

PATIENT
  Age: 51 Year
  Sex: Female

DRUGS (11)
  1. LEPONEX [Suspect]
     Indication: SCHIZOPHRENIA
     Dosage: 350 MG/D
     Route: 048
     Dates: start: 20060601, end: 20060725
  2. DIAPAM [Concomitant]
  3. TEMESTA [Concomitant]
     Dosage: 2 MG/D
     Route: 048
     Dates: start: 20060728, end: 20060729
  4. SERENASE [Concomitant]
     Dosage: 4 MG/D
     Route: 048
     Dates: start: 20060728, end: 20060729
  5. TENOX [Concomitant]
     Dosage: 20 MG/D
  6. ZYPREXA [Concomitant]
     Dosage: 15 MG/D
     Route: 048
     Dates: start: 20060317, end: 20060724
  7. ZYPREXA [Concomitant]
     Dosage: 20 MG/D
     Route: 048
     Dates: start: 20060725, end: 20060727
  8. LITO [Concomitant]
     Dosage: 300 MG/D
     Route: 048
     Dates: start: 20060721
  9. MOVICOL [Concomitant]
     Dosage: UNK, PRN
  10. NOZINAN [Concomitant]
     Dosage: 100 MG/D
     Route: 048
     Dates: end: 20060720
  11. NOZINAN [Concomitant]
     Route: 048
     Dates: end: 20060727

REACTIONS (3)
  - ABSCESS [None]
  - LEUKOPENIA [None]
  - NEUTROPENIA [None]
